FAERS Safety Report 14403353 (Version 1)
Quarter: 2018Q1

REPORT INFORMATION
  Report Type: Spontaneous
  Country: US (occurrence: US)
  Receive Date: 20180117
  Receipt Date: 20180117
  Transmission Date: 20180509
  Serious: No
  Sender: FDA-Public Use
  Company Number: US-SA-2017SA017799

PATIENT
  Age: 20 Year
  Sex: Male

DRUGS (23)
  1. HYDROXYUREA. [Concomitant]
     Active Substance: HYDROXYUREA
  2. CEFDINIR. [Concomitant]
     Active Substance: CEFDINIR
  3. CLOFARABINE. [Suspect]
     Active Substance: CLOFARABINE
     Indication: ACUTE LYMPHOCYTIC LEUKAEMIA
     Route: 065
     Dates: start: 201612
  4. MAGNESIUM OXIDE. [Concomitant]
     Active Substance: MAGNESIUM OXIDE
  5. MORPHINE SULFATE. [Concomitant]
     Active Substance: MORPHINE SULFATE
  6. OMEPRAZOLE. [Concomitant]
     Active Substance: OMEPRAZOLE
  7. SCOPOLAMINE [Concomitant]
     Active Substance: SCOPOLAMINE
  8. ETOPOSIDE. [Suspect]
     Active Substance: ETOPOSIDE
     Indication: ACUTE LYMPHOCYTIC LEUKAEMIA
     Route: 065
     Dates: start: 201612
  9. ALLOPURINOL. [Concomitant]
     Active Substance: ALLOPURINOL
  10. ARIPIPRAZOLE. [Concomitant]
     Active Substance: ARIPIPRAZOLE
  11. POSACONAZOLE [Concomitant]
     Active Substance: POSACONAZOLE
  12. TRIMETHOPRIM/SULFAMETHOXAZOLE [Concomitant]
  13. MERCAPTOPURINE. [Concomitant]
     Active Substance: MERCAPTOPURINE
  14. METHOCARBAMOL. [Concomitant]
     Active Substance: METHOCARBAMOL
  15. ONDANSETRON [Concomitant]
     Active Substance: ONDANSETRON
  16. CITALOPRAM [Concomitant]
     Active Substance: CITALOPRAM HYDROBROMIDE
  17. GABAPENTIN. [Concomitant]
     Active Substance: GABAPENTIN
  18. CYCLOPHOSPHAMIDE. [Suspect]
     Active Substance: CYCLOPHOSPHAMIDE
     Indication: ACUTE LYMPHOCYTIC LEUKAEMIA
     Route: 065
     Dates: start: 201612
  19. ACICLOVIR [Concomitant]
     Active Substance: ACYCLOVIR
  20. DEXAMETHASONE. [Concomitant]
     Active Substance: DEXAMETHASONE
  21. OXYCODONE [Concomitant]
     Active Substance: OXYCODONE
  22. DRONABINOL. [Concomitant]
     Active Substance: DRONABINOL
  23. LORAZEPAM. [Concomitant]
     Active Substance: LORAZEPAM

REACTIONS (1)
  - Drug ineffective [Unknown]
